FAERS Safety Report 10446387 (Version 1)
Quarter: 2014Q3

REPORT INFORMATION
  Report Type: Spontaneous
  Country: US (occurrence: US)
  Receive Date: 20140911
  Receipt Date: 20140911
  Transmission Date: 20150326
  Serious: No
  Sender: FDA-Public Use
  Company Number: US-009507513-1409USA001625

PATIENT
  Age: 52 Year
  Sex: Male

DRUGS (1)
  1. SULINDAC. [Suspect]
     Active Substance: SULINDAC
     Dosage: 150 MG, TWICE DAILY
     Route: 048

REACTIONS (1)
  - Drug ineffective [Unknown]
